FAERS Safety Report 22294209 (Version 3)
Quarter: 2023Q2

REPORT INFORMATION
  Report Type: Spontaneous
  Country: US (occurrence: US)
  Receive Date: 20230508
  Receipt Date: 20230627
  Transmission Date: 20230721
  Serious: No
  Sender: FDA-Public Use
  Company Number: US-PFIZER INC-202300176710

PATIENT
  Age: 39 Year
  Sex: Female
  Weight: 63.5 kg

DRUGS (8)
  1. GENOTROPIN [Suspect]
     Active Substance: SOMATROPIN
     Indication: Growth hormone deficiency
     Dosage: 0.2 MG, DAILY (EVERY DAY FOR LIFE)
  2. GENOTROPIN [Suspect]
     Active Substance: SOMATROPIN
     Indication: Leukaemia
  3. GENOTROPIN [Suspect]
     Active Substance: SOMATROPIN
     Indication: Bone disorder
  4. GENOTROPIN [Suspect]
     Active Substance: SOMATROPIN
     Indication: Blood growth hormone
  5. NORDITROPIN [Suspect]
     Active Substance: SOMATROPIN
     Dosage: UNK
  6. LEVOTHYROXINE [Concomitant]
     Active Substance: LEVOTHYROXINE
     Indication: Thyroidectomy
     Dosage: 7 MG (DAILY EXCEPT ON SUNDAY)
  7. LEVOTHYROXINE [Concomitant]
     Active Substance: LEVOTHYROXINE
     Indication: Growth hormone deficiency
     Dosage: 0.2 MG, DAILY
  8. INSULIN NOS [Concomitant]
     Active Substance: INSULIN NOS
     Dosage: UNK

REACTIONS (2)
  - Drug dose omission by device [Unknown]
  - Device mechanical issue [Unknown]
